FAERS Safety Report 5898553-X (Version None)
Quarter: 2008Q3

REPORT INFORMATION
  Report Type: 
  Country: None (occurrence: None)
  Receive Date: 20080925
  Receipt Date: 20080115
  Transmission Date: 20090109
  Serious: No
  Sender: FDA-Public Use
  Company Number: A0704427A

PATIENT
  Age: 2 Month

DRUGS (2)
  1. WELLBUTRIN XL [Suspect]
     Indication: DRUG USE FOR UNKNOWN INDICATION
     Dosage: 300MG PER DAY
     Dates: start: 20071001
  2. NO CONCURRENT MEDICATIONS [Concomitant]

REACTIONS (3)
  - DRUG EXPOSURE VIA BREAST MILK [None]
  - HYPERHIDROSIS [None]
  - HYPERSOMNIA [None]
